FAERS Safety Report 11446215 (Version 1)
Quarter: 2015Q3

REPORT INFORMATION
  Report Type: Spontaneous
  Country: US (occurrence: US)
  Receive Date: 20150902
  Receipt Date: 20150902
  Transmission Date: 20151125
  Serious: No
  Sender: FDA-Public Use
  Company Number: US-BAYER-2015-413213

PATIENT
  Age: 52 Year
  Sex: Male
  Weight: 95.24 kg

DRUGS (1)
  1. ALEVE [Suspect]
     Active Substance: NAPROXEN SODIUM
     Indication: ANALGESIC THERAPY
     Dosage: 2 DF, QD
     Route: 048
     Dates: start: 20150505, end: 20150824

REACTIONS (2)
  - Syncope [Unknown]
  - Product use issue [Unknown]

NARRATIVE: CASE EVENT DATE: 20150505
